FAERS Safety Report 6079983-2 (Version None)
Quarter: 2009Q1

REPORT INFORMATION
  Report Type: 
  Country: None (occurrence: None)
  Receive Date: 20090217
  Receipt Date: 20081121
  Transmission Date: 20090719
  Serious: No
  Sender: FDA-Public Use
  Company Number: A0757647A

PATIENT
  Age: 91 Year
  Sex: Female

DRUGS (4)
  1. COREG CR [Suspect]
     Dosage: 80MG PER DAY
     Route: 048
     Dates: start: 20081119
  2. LISINOPRIL [Concomitant]
  3. KLONOPIN [Concomitant]
  4. FUROSEMIDE [Concomitant]

REACTIONS (2)
  - HYPOTENSION [None]
  - SOMNOLENCE [None]
